FAERS Safety Report 26114200 (Version 3)
Quarter: 2025Q4

REPORT INFORMATION
  Report Type: Report from Study
  Country: US (occurrence: US)
  Receive Date: 20251202
  Receipt Date: 20251224
  Transmission Date: 20260117
  Serious: Yes (Other)
  Sender: MALLINCKRODT
  Company Number: US-MALLINCKRODT-MNK202507428

PATIENT
  Age: 57 Year
  Sex: Female

DRUGS (2)
  1. CORTICOTROPIN [Suspect]
     Active Substance: CORTICOTROPIN
     Indication: Dry eye
     Dosage: UNKNOWN
  2. GABAPENTIN [Concomitant]
     Active Substance: GABAPENTIN
     Dosage: UNKNOWN

REACTIONS (6)
  - Lymphoma [Not Recovered/Not Resolved]
  - Sjogren^s syndrome [Not Recovered/Not Resolved]
  - Intervertebral disc disorder [Unknown]
  - Sciatica [Unknown]
  - Injection site bruising [Recovering/Resolving]
  - Inappropriate schedule of product administration [Unknown]
